FAERS Safety Report 9178477 (Version 3)
Quarter: 2013Q2

REPORT INFORMATION
  Report Type: Report from Study
  Country: GR (occurrence: GR)
  Receive Date: 20130321
  Receipt Date: 20130403
  Transmission Date: 20140414
  Serious: Yes (Hospitalization)
  Sender: FDA-Public Use
  Company Number: GR-ABBOTT-13P-066-1063411-00

PATIENT
  Age: 79 Year
  Sex: Male
  Weight: 78.9 kg

DRUGS (9)
  1. ZEMPLAR [Suspect]
     Indication: RENAL FAILURE CHRONIC
     Route: 042
     Dates: start: 20121112
  2. ZEMPLAR [Suspect]
     Indication: HAEMODIALYSIS
  3. ZEMPLAR [Suspect]
     Indication: HYPERPARATHYROIDISM SECONDARY
  4. RENVELA [Concomitant]
     Indication: HYPERPHOSPHATAEMIA
     Route: 048
  5. LANTHANUM CARBONATE [Concomitant]
     Indication: HYPERPHOSPHATAEMIA
     Route: 048
  6. SINTROM [Concomitant]
     Indication: PRODUCT USED FOR UNKNOWN INDICATION
     Dates: end: 20130310
  7. OMEPRAZOLE [Concomitant]
     Indication: GASTROINTESTINAL DISORDER
     Route: 048
  8. OMEPRAZOLE [Concomitant]
     Indication: PROPHYLAXIS
  9. CALCIUM [Concomitant]
     Indication: HYPERPHOSPHATAEMIA
     Route: 048

REACTIONS (3)
  - Fall [Recovering/Resolving]
  - Femur fracture [Recovered/Resolved with Sequelae]
  - Haematocrit decreased [Unknown]
